FAERS Safety Report 18827790 (Version 2)
Quarter: 2021Q1

REPORT INFORMATION
  Report Type: Report from Study
  Country: JP (occurrence: JP)
  Receive Date: 20210202
  Receipt Date: 20210323
  Transmission Date: 20210419
  Serious: Yes (Hospitalization)
  Sender: FDA-Public Use
  Company Number: JP-SA-2021SA027751

PATIENT
  Age: 48 Year
  Sex: Male
  Weight: 72.6 kg

DRUGS (11)
  1. ALEMTUZUMAB [Suspect]
     Active Substance: ALEMTUZUMAB
     Dosage: 30 MG, TIW
     Route: 041
     Dates: start: 20201026, end: 20201030
  2. VALTREX [Concomitant]
     Active Substance: VALACYCLOVIR HYDROCHLORIDE
     Indication: INFECTION PROPHYLAXIS
     Dosage: 500 MG, QD
     Route: 048
     Dates: start: 20201020
  3. ALEMTUZUMAB [Suspect]
     Active Substance: ALEMTUZUMAB
     Dosage: 30 MG, 1X
     Route: 041
     Dates: start: 20201022, end: 20201022
  4. CALONAL [Concomitant]
     Active Substance: ACETAMINOPHEN
     Indication: PROPHYLAXIS
     Dosage: 600 MG, TIW
     Route: 048
     Dates: start: 20201019, end: 20201104
  5. ALEMTUZUMAB [Suspect]
     Active Substance: ALEMTUZUMAB
     Dosage: 10 MG, 1X
     Route: 041
     Dates: start: 20201021, end: 20201021
  6. ALEMTUZUMAB [Suspect]
     Active Substance: ALEMTUZUMAB
     Indication: T-CELL PROLYMPHOCYTIC LEUKAEMIA
     Dosage: 30 MG, TIW
     Route: 041
     Dates: start: 20201102, end: 20201104
  7. ALEMTUZUMAB [Suspect]
     Active Substance: ALEMTUZUMAB
     Dosage: 3 MG, 1X
     Route: 041
     Dates: start: 20201019, end: 20201019
  8. DAIPHEN [Concomitant]
     Active Substance: SULFAMETHOXAZOLE\TRIMETHOPRIM
     Indication: INFECTION PROPHYLAXIS
     Dosage: 2 DF, BIW
     Route: 048
     Dates: start: 20200926
  9. TRAVELMIN [DIPHENHYDRAMINE HYDROCHLORIDE;DIPROPHYLLINE] [Concomitant]
     Indication: PROPHYLAXIS
     Dosage: 1 DF, TIW
     Route: 048
     Dates: start: 20201019, end: 20201104
  10. ALEMTUZUMAB [Suspect]
     Active Substance: ALEMTUZUMAB
     Dosage: 3 MG, 1X
     Route: 041
     Dates: start: 20201020, end: 20201020
  11. VICCLOX [ACICLOVIR] [Concomitant]
     Active Substance: ACYCLOVIR
     Indication: INFECTION PROPHYLAXIS
     Dosage: 200 MG, QD
     Route: 048
     Dates: start: 20200928, end: 20201019

REACTIONS (3)
  - Infusion related reaction [Recovered/Resolved]
  - Cytomegalovirus test positive [Recovered/Resolved]
  - Rash [Recovered/Resolved]

NARRATIVE: CASE EVENT DATE: 20201019
